FAERS Safety Report 15203995 (Version 1)
Quarter: 2018Q3

REPORT INFORMATION
  Report Type: Spontaneous
  Country: US (occurrence: US)
  Receive Date: 20180628
  Receipt Date: 20180628
  Transmission Date: 20181010
  Serious: No
  Sender: FDA-Public Use
  Company Number: None

PATIENT
  Age: 72 Year
  Sex: Male

DRUGS (1)
  1. AFINITOR [Suspect]
     Active Substance: EVEROLIMUS
     Indication: THYROID CANCER
     Route: 048

REACTIONS (4)
  - Fatigue [None]
  - Hyperglycaemia [None]
  - Cough [None]
  - Stomatitis [None]

NARRATIVE: CASE EVENT DATE: 20180520
